FAERS Safety Report 19742368 (Version 3)
Quarter: 2022Q2

REPORT INFORMATION
  Report Type: Spontaneous
  Country: IT (occurrence: IT)
  Receive Date: 20210824
  Receipt Date: 20220419
  Transmission Date: 20220720
  Serious: Yes (Other)
  Sender: FDA-Public Use
  Company Number: IT-VIIV HEALTHCARE LIMITED-IT2021GSK058522

PATIENT
  Age: 39 Year
  Sex: Male

DRUGS (16)
  1. TENOFOVIR DISOPROXIL [Suspect]
     Active Substance: TENOFOVIR DISOPROXIL
     Indication: HIV infection
     Dosage: UNK
  2. LAMIVUDINE [Suspect]
     Active Substance: LAMIVUDINE
     Indication: HIV infection
     Dosage: UNK
  3. LAMIVUDINE [Suspect]
     Active Substance: LAMIVUDINE
     Dosage: UNK
  4. LAMIVUDINE [Suspect]
     Active Substance: LAMIVUDINE
     Dosage: DURATION OF DRUG ADMINISTRATION: 10 WEEKS
  5. ABACAVIR [Suspect]
     Active Substance: ABACAVIR
     Indication: HIV infection
     Dosage: UNK
  6. RITONAVIR [Suspect]
     Active Substance: RITONAVIR
     Indication: HIV infection
     Dosage: UNK
  7. DARUNAVIR [Suspect]
     Active Substance: DARUNAVIR
     Indication: Product used for unknown indication
     Dosage: UNK
  8. EMTRICITABINE [Suspect]
     Active Substance: EMTRICITABINE
     Indication: HIV infection
     Dosage: UNK
  9. DARUNAVIR\RITONAVIR [Suspect]
     Active Substance: DARUNAVIR\RITONAVIR
     Indication: HIV infection
     Dosage: UNK UNK, QD
  10. DARUNAVIR\RITONAVIR [Suspect]
     Active Substance: DARUNAVIR\RITONAVIR
     Dosage: UNK UNK, QD (UNK, BID)
  11. DARUNAVIR\RITONAVIR [Suspect]
     Active Substance: DARUNAVIR\RITONAVIR
     Dosage: UNK UNK, QD (UNK, BID)
  12. ZIDOVUDINE [Concomitant]
     Active Substance: ZIDOVUDINE
     Indication: HIV infection
     Dosage: UNK
  13. ZIDOVUDINE [Concomitant]
     Active Substance: ZIDOVUDINE
     Dosage: UNK
  14. MARAVIROC [Concomitant]
     Active Substance: MARAVIROC
     Indication: HIV infection
     Dosage: UNK
  15. RALTEGRAVIR [Concomitant]
     Active Substance: RALTEGRAVIR
     Indication: HIV infection
     Dosage: UNK
  16. DOLUTEGRAVIR [Concomitant]
     Active Substance: DOLUTEGRAVIR
     Indication: HIV infection
     Dosage: UNK, Q2W

REACTIONS (13)
  - Pathogen resistance [Unknown]
  - Brain oedema [Recovered/Resolved]
  - CSF HIV escape syndrome [Recovered/Resolved]
  - Disease recurrence [Recovered/Resolved]
  - Atrophy [Recovered/Resolved]
  - Nervous system disorder [Recovered/Resolved]
  - Viral mutation identified [Unknown]
  - Cognitive disorder [Recovered/Resolved]
  - Cerebral disorder [Recovered/Resolved]
  - Peripheral venous disease [Recovered/Resolved]
  - White matter lesion [Recovered/Resolved]
  - Headache [Recovered/Resolved]
  - Virologic failure [Recovered/Resolved]
